FAERS Safety Report 5769677-2 (Version None)
Quarter: 2008Q2

REPORT INFORMATION
  Report Type: 
  Country: None (occurrence: None)
  Receive Date: 20080612
  Receipt Date: 20080407
  Transmission Date: 20081010
  Serious: No
  Sender: FDA-Public Use
  Company Number: US-ABBOTT-08P-163-0445766-00

PATIENT
  Sex: Female
  Weight: 78.088 kg

DRUGS (10)
  1. HUMIRA [Suspect]
     Indication: RHEUMATOID ARTHRITIS
     Route: 058
     Dates: start: 20040301, end: 20060301
  2. HUMIRA [Suspect]
     Dosage: PEN
     Dates: start: 20060301
  3. HUMIRA [Suspect]
     Indication: RHEUMATOID ARTHRITIS
     Route: 058
     Dates: start: 20060301
  4. RISEDRONATE SODIUM [Concomitant]
     Indication: RHEUMATOID ARTHRITIS
     Route: 048
  5. LEVOTHYROXINE SODIUM [Concomitant]
     Indication: HYPOTHYROIDISM
     Route: 048
  6. METHOTREXATE [Concomitant]
     Indication: RHEUMATOID ARTHRITIS
     Route: 048
  7. PRAVASTATIN [Concomitant]
     Indication: BLOOD CHOLESTEROL INCREASED
     Route: 048
  8. FOLIC ACID [Concomitant]
     Indication: RHEUMATOID ARTHRITIS
     Route: 048
  9. VERAMYST [Concomitant]
     Indication: SEASONAL ALLERGY
     Route: 048
  10. AMOXICILLIN [Concomitant]
     Indication: SINUSITIS
     Route: 048
     Dates: start: 20080301, end: 20080301

REACTIONS (5)
  - INJECTION SITE PAIN [None]
  - INJECTION SITE RASH [None]
  - INJECTION SITE WARMTH [None]
  - RASH [None]
  - SINUSITIS [None]
